FAERS Safety Report 4588129-9 (Version None)
Quarter: 2005Q1

REPORT INFORMATION
  Report Type: 
  Country: None (occurrence: None)
  Receive Date: 20050221
  Receipt Date: 20050210
  Transmission Date: 20050727
  Serious: Yes (Other)
  Sender: FDA-Public Use
  Company Number: PHEH2005US01919

PATIENT
  Age: 34 Year
  Sex: Male

DRUGS (2)
  1. ZELNORM [Suspect]
     Indication: IRRITABLE BOWEL SYNDROME
     Dosage: 6 MG, BID
     Route: 048
     Dates: start: 20050209, end: 20050210
  2. LAXATIVES [Concomitant]

REACTIONS (10)
  - ABDOMINAL PAIN [None]
  - BACK PAIN [None]
  - DIARRHOEA [None]
  - DIZZINESS [None]
  - GASTROINTESTINAL DISORDER [None]
  - GROIN PAIN [None]
  - HAEMATOCHEZIA [None]
  - HEADACHE [None]
  - RENAL IMPAIRMENT [None]
  - TESTIS DISCOMFORT [None]
